FAERS Safety Report 4514116-2 (Version None)
Quarter: 2004Q4

REPORT INFORMATION
  Report Type: 
  Country: None (occurrence: None)
  Receive Date: 20041124
  Receipt Date: 20041115
  Transmission Date: 20050328
  Serious: Yes (Hospitalization)
  Sender: FDA-Public Use
  Company Number: 2004-11-0582

PATIENT
  Age: 52 Year
  Sex: Female

DRUGS (8)
  1. TEMODAL [Suspect]
     Indication: GLIOBLASTOMA MULTIFORME
     Dosage: 120 MG/DAY ORAL
     Route: 048
     Dates: start: 20041004
  2. CATS CLAW (UNCARIA TOMENTOSA/GUIANENSIS) CAPSULES [Suspect]
     Dosage: 3 G/DAY ORAL
     Route: 048
  3. RADIATION THERAPY [Concomitant]
  4. ZOFRAN [Concomitant]
  5. DEXAMETHASONE [Concomitant]
  6. VITAMIN E [Concomitant]
  7. VITAMIN C [Concomitant]
  8. SELENIUM TRACE METAL ADDITIVE [Concomitant]

REACTIONS (4)
  - NAUSEA [None]
  - PYREXIA [None]
  - RENAL FAILURE ACUTE [None]
  - VOMITING [None]
